FAERS Safety Report 12871961 (Version 1)
Quarter: 2016Q4

REPORT INFORMATION
  Report Type: Spontaneous
  Country: US (occurrence: US)
  Receive Date: 20161021
  Receipt Date: 20161021
  Transmission Date: 20170207
  Serious: Yes (Other)
  Sender: FDA-Public Use
  Company Number: US-MUNDIPHARMA DS AND PHARMACOVIGILANCE-USA-2016-0132315

PATIENT
  Age: 24 Year
  Sex: Female

DRUGS (2)
  1. OXYCODONE HCL CR TABLETS (SIMILAR TO NDA 22-272) [Suspect]
     Active Substance: OXYCODONE HYDROCHLORIDE
     Indication: DRUG ABUSE
     Route: 048
  2. MORPHINE SULFATE (SIMILAR TO NDA 19-516) [Suspect]
     Active Substance: MORPHINE SULFATE
     Indication: DRUG ABUSE
     Dosage: 3-4 X 60 MG, DAILY
     Route: 048

REACTIONS (7)
  - Drug withdrawal syndrome [Unknown]
  - Tremor [Unknown]
  - Drug tolerance [Unknown]
  - Vomiting [Unknown]
  - Malaise [Unknown]
  - Drug abuse [Unknown]
  - Drug dependence [Unknown]
